FAERS Safety Report 6836294-2 (Version None)
Quarter: 2010Q2

REPORT INFORMATION
  Report Type: 
  Country: None (occurrence: None)
  Receive Date: 20100624
  Receipt Date: 20100303
  Transmission Date: 20101027
  Serious: No
  Sender: FDA-Public Use
  Company Number: DKLU1061318

PATIENT
  Age: 1 Year
  Sex: Male

DRUGS (1)
  1. SABRIL [Suspect]
     Indication: CONVULSION
     Dosage: 3 ML MILLILITRE(S), 1 IN 1 D; 150 MG MILLIGRAM(S), 1 IN 1 D

REACTIONS (3)
  - BLEPHAROSPASM [None]
  - DRUG INEFFECTIVE [None]
  - SOMNOLENCE [None]
